FAERS Safety Report 4482481-0 (Version None)
Quarter: 2004Q4

REPORT INFORMATION
  Report Type: 
  Country: None (occurrence: None)
  Receive Date: 20041022
  Receipt Date: 20041018
  Transmission Date: 20050328
  Serious: Yes (Other)
  Sender: FDA-Public Use
  Company Number: 2004020343

PATIENT
  Age: 33 Year
  Sex: Female
  Weight: 90 kg

DRUGS (5)
  1. IMIGRAN [Suspect]
     Route: 048
  2. AMITRIPTYLIN [Suspect]
     Route: 048
  3. DOXYCYCLIN [Suspect]
     Route: 048
  4. ACC [Suspect]
     Route: 048
  5. ISOCILLIN [Suspect]
     Route: 048

REACTIONS (3)
  - INTENTIONAL OVERDOSE [None]
  - SOMNOLENCE [None]
  - SUICIDE ATTEMPT [None]
